FAERS Safety Report 24310353 (Version 2)
Quarter: 2024Q3

REPORT INFORMATION
  Report Type: Spontaneous
  Country: PL (occurrence: None)
  Receive Date: 20240912
  Receipt Date: 20240918
  Transmission Date: 20241016
  Serious: Yes (Other)
  Sender: ASTRAZENECA
  Company Number: 2024A204446

PATIENT
  Age: 30610 Day
  Sex: Male
  Weight: 74 kg

DRUGS (4)
  1. DAPAGLIFLOZIN [Suspect]
     Active Substance: DAPAGLIFLOZIN
     Indication: Chronic kidney disease
     Route: 048
     Dates: start: 20240612, end: 20240831
  2. ATROX [Concomitant]
     Indication: Hyperlipidaemia
  3. VALSARTAN [Concomitant]
     Active Substance: VALSARTAN
     Dates: start: 20240513
  4. AUROSOLIN [Concomitant]
     Indication: Pollakiuria

REACTIONS (3)
  - Escherichia urinary tract infection [Recovering/Resolving]
  - Prostatic specific antigen increased [Recovering/Resolving]
  - Prostatitis [Recovering/Resolving]

NARRATIVE: CASE EVENT DATE: 20240816
